FAERS Safety Report 10795804 (Version 1)
Quarter: 2015Q1

REPORT INFORMATION
  Report Type: Spontaneous
  Country: US (occurrence: US)
  Receive Date: 20150215
  Receipt Date: 20150215
  Transmission Date: 20150721
  Serious: Yes (Other)
  Sender: FDA-Public Use
  Company Number: US-009507513-1502USA006024

PATIENT
  Sex: Male

DRUGS (1)
  1. ISENTRESS [Suspect]
     Active Substance: RALTEGRAVIR POTASSIUM
     Route: 050

REACTIONS (4)
  - Laryngeal squamous cell carcinoma [Unknown]
  - Gastrostomy [Unknown]
  - Wrong technique in drug usage process [Unknown]
  - Incorrect route of drug administration [Unknown]
